FAERS Safety Report 8826815 (Version 3)
Quarter: 2012Q4

REPORT INFORMATION
  Report Type: 
  Country: US (occurrence: US)
  Receive Date: 20121008
  Receipt Date: 20121018
  Transmission Date: 20130627
  Serious: Yes (Hospitalization)
  Sender: FDA-Public Use
  Company Number: US-009507513-1210USA002189

PATIENT
  Age: 68 Year
  Sex: Female

DRUGS (9)
  1. SIMVASTATIN TABLETS, USP [Suspect]
     Dosage: 40 mg, qd
     Route: 048
  2. INSULIN GLARGINE [Concomitant]
     Dosage: 20 units, qd
  3. INSULIN ASPART [Concomitant]
     Dosage: 3 units qd
  4. CARVEDILOL [Concomitant]
     Dosage: 12.5 mg, qd
  5. ASPIRIN [Concomitant]
     Dosage: 81 mg, qd
  6. WARFARIN [Concomitant]
     Dosage: 6 to 7 mg, qd
  7. FUROSEMIDE [Concomitant]
     Dosage: 40 mg, qd
  8. VITAMINS (UNSPECIFIED) [Concomitant]
  9. CALCIUM (UNSPECIFIED) (+) VITAMIN D (UNSPECIFIED) [Concomitant]
     Dosage: 500 mg, bid

REACTIONS (3)
  - Drug interaction [Recovered/Resolved]
  - Rhabdomyolysis [Recovered/Resolved]
  - Hepatitis [Recovered/Resolved]
